FAERS Safety Report 19011918 (Version 1)
Quarter: 2021Q1

REPORT INFORMATION
  Report Type: Spontaneous
  Country: JP (occurrence: JP)
  Receive Date: 20210316
  Receipt Date: 20210316
  Transmission Date: 20210420
  Serious: Yes (Life-Threatening)
  Sender: FDA-Public Use
  Company Number: JP-ELI_LILLY_AND_COMPANY-JP202103006652

PATIENT
  Age: 84 Year
  Sex: Female

DRUGS (2)
  1. CILOSTAZOL. [Concomitant]
     Active Substance: CILOSTAZOL
     Indication: ARTERIOSCLEROSIS CORONARY ARTERY
     Route: 048
  2. DULOXETINE HYDROCHLORIDE. [Suspect]
     Active Substance: DULOXETINE HYDROCHLORIDE
     Indication: OSTEOARTHRITIS
     Route: 048

REACTIONS (3)
  - Long QT syndrome [Unknown]
  - Ventricular fibrillation [Recovered/Resolved]
  - Torsade de pointes [Unknown]
